FAERS Safety Report 8310805 (Version 2)
Quarter: 2012Q4

REPORT INFORMATION
  Report Type: 
  Country: JP (occurrence: JP)
  Receive Date: 20111226
  Receipt Date: 20121105
  Transmission Date: 20130627
  Serious: No
  Sender: FDA-Public Use
  Company Number: JP-ELI_LILLY_AND_COMPANY-JP201112003556

PATIENT
  Sex: Female

DRUGS (2)
  1. FORTEO [Suspect]
     Dosage: UNK
     Route: 058
     Dates: start: 20111001, end: 201206
  2. FORTEO [Suspect]
     Dosage: UNK
     Route: 058
     Dates: start: 20121024

REACTIONS (4)
  - Medication error [Unknown]
  - Head discomfort [Unknown]
  - Headache [Unknown]
  - Medication error [Unknown]
